FAERS Safety Report 4762081-5 (Version None)
Quarter: 2005Q3

REPORT INFORMATION
  Report Type: 
  Country: None (occurrence: None)
  Receive Date: 20050831
  Receipt Date: 20050616
  Transmission Date: 20060218
  Serious: No
  Sender: FDA-Public Use
  Company Number: PHEH2005US06900

PATIENT
  Sex: Male

DRUGS (1)
  1. ENABLEX [Suspect]

REACTIONS (2)
  - DYSURIA [None]
  - URINE OUTPUT DECREASED [None]
